FAERS Safety Report 8087421-3 (Version None)
Quarter: 2012Q1

REPORT INFORMATION
  Report Type: 
  Country: None (occurrence: None)
  Receive Date: 20120128
  Receipt Date: 20110516
  Transmission Date: 20120608
  Serious: No
  Sender: FDA-Public Use
  Company Number: US-ABBOTT-11P-163-0726191-00

PATIENT
  Age: 37 Year
  Sex: Female

DRUGS (8)
  1. XANAX [Concomitant]
     Indication: INSOMNIA
  2. HYDROXYZINE [Concomitant]
     Indication: PRURITUS
     Dosage: 25MG 1-2 TIMES A WEEK
  3. PERCOCET [Concomitant]
     Indication: ABDOMINAL PAIN
     Dosage: 35/350MG PRN
  4. VICODIN [Concomitant]
     Indication: ABDOMINAL PAIN
     Dosage: 5/500MG PRN
  5. XANAX [Concomitant]
     Indication: ANXIETY
     Dosage: 10MG EVERY COUPLE OF DAYS
  6. PROZAC [Concomitant]
     Indication: DEPRESSION
  7. HUMIRA [Suspect]
     Indication: CROHN'S DISEASE
  8. ROBAXIN [Concomitant]
     Indication: PAIN

REACTIONS (6)
  - INJECTION SITE PAIN [None]
  - SINUSITIS [None]
  - INSOMNIA [None]
  - MUSCLE SPASMS [None]
  - INCORRECT DOSE ADMINISTERED [None]
  - FATIGUE [None]
